FAERS Safety Report 8295627-3 (Version None)
Quarter: 2012Q2

REPORT INFORMATION
  Report Type: 
  Country: None (occurrence: None)
  Receive Date: 20120413
  Receipt Date: 20120413
  Transmission Date: 20120825
  Serious: No
  Sender: FDA-Public Use
  Company Number: None

PATIENT
  Age: 61 Year
  Sex: Female

DRUGS (2)
  1. PRAVACHOL [Suspect]
     Dates: start: 20080401, end: 20090507
  2. AMOXICILLIN [Suspect]
     Dates: end: 20090506

REACTIONS (25)
  - DIZZINESS [None]
  - INSOMNIA [None]
  - VOMITING [None]
  - ASCITES [None]
  - NAUSEA [None]
  - GASTROOESOPHAGEAL REFLUX DISEASE [None]
  - RASH ERYTHEMATOUS [None]
  - RASH PRURITIC [None]
  - BLOOD BILIRUBIN INCREASED [None]
  - DIARRHOEA [None]
  - EXCORIATION [None]
  - HAEMATEMESIS [None]
  - PORTAL HYPERTENSION [None]
  - OEDEMA PERIPHERAL [None]
  - COUGH [None]
  - FLUID RETENTION [None]
  - EROSIVE OESOPHAGITIS [None]
  - JAUNDICE [None]
  - CHROMATURIA [None]
  - ABDOMINAL PAIN [None]
  - LIVER INJURY [None]
  - TRANSAMINASES INCREASED [None]
  - MEMORY IMPAIRMENT [None]
  - GASTRIC POLYPS [None]
  - HIATUS HERNIA [None]
